FAERS Safety Report 8273584-3 (Version None)
Quarter: 2012Q2

REPORT INFORMATION
  Report Type: 
  Country: None (occurrence: None)
  Receive Date: 20120411
  Receipt Date: 20120120
  Transmission Date: 20120825
  Serious: No
  Sender: FDA-Public Use
  Company Number: US-TEVA-318935USA

PATIENT
  Sex: Male
  Weight: 113.5 kg

DRUGS (7)
  1. OXCARBAZEPINE [Concomitant]
     Indication: BIPOLAR DISORDER
     Dosage: QHS
     Route: 048
     Dates: start: 20111101
  2. DIOVAN HCT [Concomitant]
     Indication: BLOOD PRESSURE
     Dosage: 160MG/25MG QD
     Route: 048
     Dates: start: 20111001
  3. NUVIGIL [Suspect]
     Indication: CIRCADIAN RHYTHM SLEEP DISORDER
     Dosage: TAKEN ON WORK DAYS ONLY
     Route: 048
     Dates: start: 20091101
  4. DULOXETINE HYDROCHLORIDE [Concomitant]
     Indication: BIPOLAR DISORDER
     Dosage: QD, ONLY DURING WAKING HOURS
     Route: 048
     Dates: start: 20091101
  5. PROPRANOLOL [Concomitant]
     Indication: BIPOLAR DISORDER
     Dosage: 10 MILLIGRAM;
     Route: 048
     Dates: start: 20091101
  6. ALPRAZOLAM [Concomitant]
     Indication: ANXIETY
     Dosage: PRN
     Route: 048
  7. VALACYCLOVIR HYDROCHLORIDE [Concomitant]
     Indication: HERPES ZOSTER
     Dosage: QD
     Route: 048

REACTIONS (2)
  - HYPERSOMNIA [None]
  - SOMNOLENCE [None]
